FAERS Safety Report 6016573-1 (Version None)
Quarter: 2008Q4

REPORT INFORMATION
  Report Type: 
  Country: None (occurrence: None)
  Receive Date: 20081222
  Receipt Date: 20081210
  Transmission Date: 20090506
  Serious: Yes (Other)
  Sender: FDA-Public Use
  Company Number: PHHY2008JP31767

PATIENT
  Age: 60 Year
  Sex: Male

DRUGS (1)
  1. CYCLOSPORINE [Suspect]
     Indication: INTERSTITIAL LUNG DISEASE
     Dosage: UNK

REACTIONS (4)
  - INTERSTITIAL LUNG DISEASE [None]
  - MYCOPLASMA INFECTION [None]
  - PNEUMOCYSTIS JIROVECI PNEUMONIA [None]
  - PSITTACOSIS [None]
